FAERS Safety Report 14201782 (Version 3)
Quarter: 2017Q4

REPORT INFORMATION
  Report Type: Spontaneous
  Country: US (occurrence: US)
  Receive Date: 20171117
  Receipt Date: 20171229
  Transmission Date: 20180321
  Serious: Yes (Other)
  Sender: FDA-Public Use
  Company Number: US-OMEROS CORPORATION-2017OME00019

PATIENT
  Age: 77 Year
  Sex: Female

DRUGS (16)
  1. OMIDRIA [Suspect]
     Active Substance: KETOROLAC\PHENYLEPHRINE
     Indication: INTRAOCULAR LENS IMPLANT
  2. OFLOXACIN. [Concomitant]
     Active Substance: OFLOXACIN
     Dosage: 1 DROP, 4X/DAY, BOTH EYES
     Dates: start: 20170923
  3. BETADINE [Concomitant]
     Active Substance: POVIDONE-IODINE
     Dosage: UNK
     Route: 061
     Dates: start: 20170926, end: 20170926
  4. MULTIVITAMIN [Concomitant]
     Active Substance: VITAMINS
     Dosage: 1 TABLETS, 1X/DAY
     Route: 048
  5. ALCON BSS [Concomitant]
     Dosage: UNK, ONCE
     Dates: start: 20170926, end: 20170926
  6. CINNAMON. [Concomitant]
     Active Substance: CINNAMON
     Dosage: 500 MG, 1X/DAY
     Route: 048
  7. VISINE TEARS DRY EYE RELIEF [Concomitant]
     Active Substance: GLYCERIN\HYPROMELLOSES\POLYETHYLENE GLYCOL 400
     Dosage: 1 DROP, AS DIRECTED IN BOTH EYES
  8. OMIDRIA [Suspect]
     Active Substance: KETOROLAC\PHENYLEPHRINE
     Indication: CATARACT OPERATION
     Dosage: UNK ONCE TO THE LEFT EYE
     Route: 031
     Dates: start: 20170926, end: 20170926
  9. ST JOSEPH ASPIRIN [Concomitant]
     Dosage: 81 MG, 1X/DAY
     Route: 048
  10. STERILE SALINE [Concomitant]
     Route: 061
  11. DUOVISC [Concomitant]
     Active Substance: CHONDROITIN SULFATE A\HYALURONATE SODIUM
     Dosage: UNK, ONCE
  12. LUTEIN [Concomitant]
     Active Substance: LUTEIN
     Dosage: 6 MG, 1X/DAY
     Route: 048
  13. KETOROLAC [Concomitant]
     Active Substance: KETOROLAC\KETOROLAC TROMETHAMINE
     Dosage: 1 DROP, 4X/DAY, LEFT EYE
     Dates: start: 20170923
  14. PRESERVATIVE FREE INTRAOCULAR LIDOCAINE [Concomitant]
     Dosage: 4 ML, ONCE
     Route: 031
     Dates: start: 20170926, end: 20170926
  15. VISCOAT [Concomitant]
  16. REFRESH TEARS [Concomitant]
     Active Substance: CARBOXYMETHYLCELLULOSE SODIUM
     Dosage: 1 DROP, AS DIRECTED IN BOTH EYES

REACTIONS (5)
  - Corneal oedema [Recovered/Resolved]
  - Toxic anterior segment syndrome [Unknown]
  - Keratitis [Recovered/Resolved]
  - Fibrin [Recovered/Resolved]
  - Anterior chamber inflammation [Recovered/Resolved]

NARRATIVE: CASE EVENT DATE: 2017
